FAERS Safety Report 14101651 (Version 5)
Quarter: 2018Q1

REPORT INFORMATION
  Report Type: Report from Study
  Country: None (occurrence: US)
  Receive Date: 20171018
  Receipt Date: 20180321
  Transmission Date: 20180508
  Serious: Yes (Hospitalization, Other)
  Sender: FDA-Public Use
  Company Number: US-ABBVIE-17K-163-2024068-00

PATIENT
  Age: 65 Year
  Sex: Female
  Weight: 64.01 kg

DRUGS (4)
  1. FOSAMAX [Concomitant]
     Active Substance: ALENDRONATE SODIUM
     Indication: PRODUCT USED FOR UNKNOWN INDICATION
  2. HUMIRA [Suspect]
     Active Substance: ADALIMUMAB
     Indication: ANKYLOSING SPONDYLITIS
     Route: 058
     Dates: start: 2013, end: 201707
  3. ARMOUR THYROID [Concomitant]
     Active Substance: THYROID, PORCINE
     Indication: PRODUCT USED FOR UNKNOWN INDICATION
  4. HUMIRA [Suspect]
     Active Substance: ADALIMUMAB
     Route: 058
     Dates: start: 20171010

REACTIONS (10)
  - Fungal infection [Recovered/Resolved]
  - Drug ineffective [Unknown]
  - Upper limb fracture [Recovered/Resolved]
  - Osteoporosis [Not Recovered/Not Resolved]
  - Spinal compression fracture [Recovered/Resolved]
  - Bone density decreased [Not Recovered/Not Resolved]
  - Fall [Unknown]
  - Injection site pain [Not Recovered/Not Resolved]
  - Fall [Recovered/Resolved]
  - Dyspnoea [Recovered/Resolved]

NARRATIVE: CASE EVENT DATE: 2013
